FAERS Safety Report 8316387-3 (Version None)
Quarter: 2012Q2

REPORT INFORMATION
  Report Type: 
  Country: None (occurrence: None)
  Receive Date: 20120425
  Receipt Date: 20120425
  Transmission Date: 20120825
  Serious: Yes (Other)
  Sender: FDA-Public Use
  Company Number: None

PATIENT
  Age: 66 Year
  Sex: Female
  Weight: 86.1834 kg

DRUGS (1)
  1. HYDROCHLOROTHIAZIDE [Suspect]
     Indication: DIURETIC THERAPY
     Dosage: 1 CAPSULE 12.5MG 1 A DAY
     Dates: start: 20120126, end: 20120204

REACTIONS (2)
  - INSOMNIA [None]
  - UNEVALUABLE EVENT [None]
